FAERS Safety Report 9720769 (Version 3)
Quarter: 2013Q4

REPORT INFORMATION
  Report Type: Report from Study
  Country: SR (occurrence: SR)
  Receive Date: 20131129
  Receipt Date: 20131206
  Transmission Date: 20140711
  Serious: Yes (Death, Other)
  Sender: FDA-Public Use
  Company Number: PHHY2013SR104572

PATIENT
  Age: 54 Year
  Sex: Male

DRUGS (4)
  1. GLIVEC [Suspect]
     Indication: GASTROINTESTINAL STROMAL TUMOUR
     Dosage: 400 MG, PER DAY
     Dates: start: 200806, end: 201308
  2. GLIVEC [Suspect]
     Dosage: 800 MG, PER DAY
     Dates: start: 201308
  3. NIFEDIPINE [Concomitant]
     Dosage: 20 MG, BID
  4. ALLOPURINOL [Concomitant]
     Dosage: 100 MG, QD

REACTIONS (7)
  - Peritonitis [Fatal]
  - Gastrointestinal stromal tumour [Not Recovered/Not Resolved]
  - Malignant neoplasm progression [Not Recovered/Not Resolved]
  - Discomfort [Not Recovered/Not Resolved]
  - Abdominal distension [Not Recovered/Not Resolved]
  - Metastases to liver [Not Recovered/Not Resolved]
  - Drug ineffective [Unknown]
